FAERS Safety Report 19593475 (Version 1)
Quarter: 2021Q3

REPORT INFORMATION
  Report Type: Spontaneous
  Country: DE (occurrence: DE)
  Receive Date: 20210722
  Receipt Date: 20210722
  Transmission Date: 20211014
  Serious: Yes (Other)
  Sender: FDA-Public Use
  Company Number: DE-DRREDDYS-SPO/GER/21/0137832

PATIENT
  Age: 28 Year
  Sex: Male

DRUGS (13)
  1. RISPERIDON [Suspect]
     Active Substance: RISPERIDONE
     Dosage: AB HIER UAWS, UBERLAPPENDE UMSTELLUNG AUF OLANZAPIN (FROM HERE ADR, OVERLAPPING SWITCH TO OLANZAPINE
     Dates: start: 20200817, end: 20200819
  2. OLANZAPINE. [Suspect]
     Active Substance: OLANZAPINE
     Indication: PRODUCT USED FOR UNKNOWN INDICATION
     Dates: start: 20200903, end: 20200907
  3. OLANZAPINE. [Suspect]
     Active Substance: OLANZAPINE
     Dates: start: 20200908
  4. OLANZAPINE. [Suspect]
     Active Substance: OLANZAPINE
     Dates: start: 20200824, end: 20200825
  5. OLANZAPINE. [Suspect]
     Active Substance: OLANZAPINE
     Dates: start: 20200826, end: 20200831
  6. RISPERIDON [Suspect]
     Active Substance: RISPERIDONE
     Dates: start: 20200801, end: 20200804
  7. RISPERIDON [Suspect]
     Active Substance: RISPERIDONE
     Dates: start: 20200729, end: 20200731
  8. OLANZAPINE. [Suspect]
     Active Substance: OLANZAPINE
     Dates: start: 20200817, end: 20200817
  9. OLANZAPINE. [Suspect]
     Active Substance: OLANZAPINE
     Dates: start: 20200901, end: 20200902
  10. RISPERIDON [Suspect]
     Active Substance: RISPERIDONE
     Dosage: UAWS EREKTIONSSTORUNGEN UND JUCKREIZ (ADRS ERECTILE DYSFUNCTION AND ITCHING)
     Dates: start: 20200811, end: 20200816
  11. OLANZAPINE. [Suspect]
     Active Substance: OLANZAPINE
     Dates: start: 20200818, end: 20200823
  12. RISPERIDON [Suspect]
     Active Substance: RISPERIDONE
     Indication: PRODUCT USED FOR UNKNOWN INDICATION
     Dates: start: 20200820, end: 20200820
  13. RISPERIDON [Suspect]
     Active Substance: RISPERIDONE
     Dates: start: 20200805, end: 20200810

REACTIONS (7)
  - Apathy [Unknown]
  - Pruritus [Unknown]
  - Musculoskeletal stiffness [Unknown]
  - Confusional state [Unknown]
  - Erectile dysfunction [Unknown]
  - Sleep disorder [Unknown]
  - Restless legs syndrome [Recovering/Resolving]

NARRATIVE: CASE EVENT DATE: 20200813
